FAERS Safety Report 10327077 (Version 2)
Quarter: 2015Q1

REPORT INFORMATION
  Report Type: Other
  Country: US (occurrence: US)
  Receive Date: 20140720
  Receipt Date: 20150320
  Transmission Date: 20150720
  Serious: Yes (Hospitalization, Other)
  Sender: FDA-Public Use
  Company Number: US-GSKPPD-2014GSK025520

PATIENT
  Age: 49 Year
  Sex: Male

DRUGS (8)
  1. COREG [Concomitant]
     Active Substance: CARVEDILOL
  2. AVANDIA [Suspect]
     Active Substance: ROSIGLITAZONE MALEATE
     Indication: DIABETES MELLITUS
     Dosage: DATES OF AVANDIA USE COULD NOT BE CONFIRMED IN RECORDS REVIEWED
     Route: 048
  3. MINOXIDIL. [Concomitant]
     Active Substance: MINOXIDIL
  4. PROCARDIA XL [Concomitant]
     Active Substance: NIFEDIPINE
  5. LISINOPRIL. [Concomitant]
     Active Substance: LISINOPRIL
  6. MICARDIS [Concomitant]
     Active Substance: TELMISARTAN
  7. HYDRALAZINE [Concomitant]
     Active Substance: HYDRALAZINE HYDROCHLORIDE
     Route: 048
  8. CATAPRES TTS III [Concomitant]
     Dosage: 1 WEEKLY
     Route: 062

REACTIONS (1)
  - Cardiac failure congestive [Recovered/Resolved]

NARRATIVE: CASE EVENT DATE: 20060109
